FAERS Safety Report 24036102 (Version 4)
Quarter: 2024Q3

REPORT INFORMATION
  Report Type: Spontaneous
  Country: FR (occurrence: FR)
  Receive Date: 20240701
  Receipt Date: 20240927
  Transmission Date: 20241016
  Serious: Yes (Hospitalization)
  Sender: PFIZER
  Company Number: FR-ROCHE-10000001710

PATIENT
  Age: 73 Year
  Sex: Female
  Weight: 87 kg

DRUGS (52)
  1. DOXORUBICIN HYDROCHLORIDE [Suspect]
     Active Substance: DOXORUBICIN HYDROCHLORIDE
     Indication: B-cell lymphoma
     Dosage: 96 MG, EVERY 3 WEEKS
     Route: 042
     Dates: start: 20240214
  2. DOXORUBICIN HYDROCHLORIDE [Suspect]
     Active Substance: DOXORUBICIN HYDROCHLORIDE
     Dosage: 91MG
     Route: 042
     Dates: start: 20240529, end: 20240529
  3. RITUXIMAB [Suspect]
     Active Substance: RITUXIMAB
     Indication: B-cell lymphoma
     Dosage: 720 MG, EVERY 3 WEEKS
     Route: 042
     Dates: start: 20240214
  4. RITUXIMAB [Suspect]
     Active Substance: RITUXIMAB
     Dosage: 683 MG
     Route: 042
     Dates: start: 20240529
  5. CYCLOPHOSPHAMIDE [Suspect]
     Active Substance: CYCLOPHOSPHAMIDE
     Indication: B-cell lymphoma
     Dosage: 1440 MG, EVERY 3 WEEKS
     Route: 042
     Dates: start: 20240214
  6. CYCLOPHOSPHAMIDE [Suspect]
     Active Substance: CYCLOPHOSPHAMIDE
     Dosage: 1366 MG
     Route: 042
     Dates: start: 20240529, end: 20240529
  7. POLATUZUMAB VEDOTIN [Suspect]
     Active Substance: POLATUZUMAB VEDOTIN
     Indication: B-cell lymphoma
     Dosage: 162 MG, EVERY 3 WEEKS
     Route: 042
     Dates: start: 20240214
  8. POLATUZUMAB VEDOTIN [Suspect]
     Active Substance: POLATUZUMAB VEDOTIN
     Dosage: 144 MG
     Route: 042
     Dates: start: 20240529, end: 20240529
  9. PREDNISONE [Suspect]
     Active Substance: PREDNISONE
     Indication: B-cell lymphoma
     Dosage: 100 MG, EVERY 3 WEEKS
     Route: 048
     Dates: start: 20240214
  10. PREDNISONE [Suspect]
     Active Substance: PREDNISONE
     Dosage: 100 MG
     Route: 048
     Dates: start: 20240602
  11. ACETAMINOPHEN [Concomitant]
     Active Substance: ACETAMINOPHEN
     Dosage: 1 G, 1X/DAY
     Route: 048
     Dates: start: 20240306, end: 20240306
  12. ACETAMINOPHEN [Concomitant]
     Active Substance: ACETAMINOPHEN
     Dosage: 1 G, 1X/DAY
     Route: 048
     Dates: start: 20240327, end: 20240327
  13. ACETAMINOPHEN [Concomitant]
     Active Substance: ACETAMINOPHEN
     Dosage: 5 MG, 1X/DAY
     Route: 048
     Dates: start: 20240507, end: 20240507
  14. ACETAMINOPHEN [Concomitant]
     Active Substance: ACETAMINOPHEN
     Dosage: 1 G, 1X/DAY
     Route: 048
     Dates: start: 20240529, end: 20240529
  15. ACETAMINOPHEN [Concomitant]
     Active Substance: ACETAMINOPHEN
     Dosage: 1 G, 1X/DAY
     Route: 048
     Dates: start: 20240620, end: 20240620
  16. ACETAMINOPHEN [Concomitant]
     Active Substance: ACETAMINOPHEN
     Dosage: 1 G, 1X/DAY
     Route: 048
     Dates: start: 20240710, end: 20240710
  17. INDAPAMIDE [Concomitant]
     Active Substance: INDAPAMIDE
     Indication: Hypertension
     Dosage: 1.5 MG, 1X/DAY
     Route: 048
  18. APREPITANT [Concomitant]
     Active Substance: APREPITANT
     Indication: Prophylaxis
     Dosage: 125 MG, 1X/DAY
     Route: 048
     Dates: start: 20240529, end: 20240529
  19. BISOPROLOL FUMARATE [Concomitant]
     Active Substance: BISOPROLOL FUMARATE
     Indication: Atrial fibrillation
     Dosage: 5 MG, 1X/DAY
     Route: 048
  20. FILGRASTIM [Concomitant]
     Active Substance: FILGRASTIM
     Dosage: UNK
     Route: 058
     Dates: start: 20240612, end: 20240614
  21. LENOGRASTIM [Concomitant]
     Active Substance: LENOGRASTIM
     Indication: Prophylaxis
     Dosage: 34000 IU, 1X/DAY
     Route: 058
     Dates: start: 20240401, end: 20240405
  22. LENOGRASTIM [Concomitant]
     Active Substance: LENOGRASTIM
     Dosage: 34000 IU, 1X/DAY
     Route: 058
     Dates: start: 20240422, end: 20240428
  23. LENOGRASTIM [Concomitant]
     Active Substance: LENOGRASTIM
     Dosage: 34000 IU, 1X/DAY
     Route: 058
     Dates: start: 20240512, end: 20240516
  24. LENOGRASTIM [Concomitant]
     Active Substance: LENOGRASTIM
     Dosage: 34000 IU, 1X/DAY
     Route: 058
     Dates: start: 20240603, end: 20240607
  25. HUMAN RED BLOOD CELL [Concomitant]
     Active Substance: HUMAN RED BLOOD CELL
     Indication: Anaemia
     Dosage: 280 ML, 1X/DAY
  26. FUROSEMIDE [Concomitant]
     Active Substance: FUROSEMIDE
     Indication: Hypertension
     Dosage: 20 MG, 1X/DAY
     Route: 048
     Dates: start: 20240327
  27. ESOMEPRAZOLE [Concomitant]
     Active Substance: ESOMEPRAZOLE
     Indication: Gastrooesophageal reflux disease
     Dosage: 40 MG, 1X/DAY
     Route: 048
  28. PLATELETS [Concomitant]
     Active Substance: HUMAN PLATELET, ALLOGENIC
     Dosage: 800 ML, 1X/DAY
     Route: 042
     Dates: start: 20240611, end: 20240611
  29. RACECADOTRIL [Concomitant]
     Active Substance: RACECADOTRIL
     Indication: Prophylaxis
     Dosage: UNK
     Route: 048
     Dates: start: 20240306
  30. ONDANSETRON [Concomitant]
     Active Substance: ONDANSETRON
     Indication: Prophylaxis
     Dosage: UNK, AS NEEDED
     Route: 048
  31. ONDANSETRON [Concomitant]
     Active Substance: ONDANSETRON
     Dosage: 8 MG, 1X/DAY
  32. VALACYCLOVIR HYDROCHLORIDE [Concomitant]
     Active Substance: VALACYCLOVIR HYDROCHLORIDE
     Dosage: FREQ:.5 D;GIVEN FOR PROPHYLAXIS IS YES
     Route: 048
  33. CHOLECALCIFEROL [Concomitant]
     Active Substance: CHOLECALCIFEROL
     Indication: Prophylaxis
     Dosage: 100000 IU
     Route: 048
  34. DEXCHLORPHENIRAMINE [Concomitant]
     Active Substance: DEXCHLORPHENIRAMINE
     Dosage: 5 MG, 1X/DAY
     Route: 042
     Dates: start: 20240507, end: 20240507
  35. DEXCHLORPHENIRAMINE [Concomitant]
     Active Substance: DEXCHLORPHENIRAMINE
     Dosage: 5 MG, 1X/DAY
     Route: 042
     Dates: start: 20240529, end: 20240529
  36. DEXCHLORPHENIRAMINE [Concomitant]
     Active Substance: DEXCHLORPHENIRAMINE
     Dosage: 5 MG, 1X/DAY
     Route: 042
     Dates: start: 20240214, end: 20240214
  37. DEXCHLORPHENIRAMINE [Concomitant]
     Active Substance: DEXCHLORPHENIRAMINE
     Dosage: 5 MG, 1X/DAY
     Route: 042
     Dates: start: 20240417, end: 20240417
  38. DEXCHLORPHENIRAMINE [Concomitant]
     Active Substance: DEXCHLORPHENIRAMINE
     Dosage: 5 MG, 1X/DAY
     Route: 042
     Dates: start: 20240620, end: 20240620
  39. DEXCHLORPHENIRAMINE [Concomitant]
     Active Substance: DEXCHLORPHENIRAMINE
     Dosage: 5 MG, 1X/DAY
     Route: 042
     Dates: start: 20240306, end: 20240306
  40. DEXCHLORPHENIRAMINE [Concomitant]
     Active Substance: DEXCHLORPHENIRAMINE
     Dosage: 5 MG, 1X/DAY
     Route: 042
     Dates: start: 20240710, end: 20240710
  41. ERYTHROPOIETIN [Concomitant]
     Active Substance: ERYTHROPOIETIN
     Indication: Anaemia
     Dosage: UNK
     Route: 042
  42. MESNA [Concomitant]
     Active Substance: MESNA
     Indication: Prophylaxis
     Dosage: FREQ:.5 D
     Route: 048
     Dates: start: 20240507, end: 20240507
  43. MESNA [Concomitant]
     Active Substance: MESNA
     Dosage: FREQ:.5 D
     Route: 048
     Dates: start: 20240529, end: 20240529
  44. MESNA [Concomitant]
     Active Substance: MESNA
     Dosage: 477.25 MG, 1X/DAY
     Route: 042
     Dates: start: 20240507, end: 20240507
  45. MESNA [Concomitant]
     Active Substance: MESNA
     Dosage: 477.25 MG, 1X/DAY
     Route: 042
     Dates: start: 20240529, end: 20240529
  46. MESNA [Concomitant]
     Active Substance: MESNA
     Dosage: UNK
  47. MONTMORILLONITE [Concomitant]
     Active Substance: MONTMORILLONITE
     Dosage: UNK, AS NEEDED
     Route: 048
     Dates: start: 20240306
  48. TINZAPARIN SODIUM [Concomitant]
     Active Substance: TINZAPARIN SODIUM
     Dosage: 14000 IU, 1X/DAY
     Route: 058
     Dates: start: 20240417
  49. SULFAMETHOXAZOLE\TRIMETHOPRIM [Concomitant]
     Active Substance: SULFAMETHOXAZOLE\TRIMETHOPRIM
     Indication: Prophylaxis
     Dosage: FREQ:.33 WK
     Route: 048
     Dates: start: 20240214
  50. PREDNISONE [Concomitant]
     Active Substance: PREDNISONE
     Dosage: 100 MG, 1X/DAY
     Dates: start: 20240620, end: 20240620
  51. PREDNISONE [Concomitant]
     Active Substance: PREDNISONE
     Dosage: 100 MG, 1X/DAY
     Dates: start: 20240710, end: 20240710
  52. POTASSIUM CHLORIDE [Concomitant]
     Active Substance: POTASSIUM CHLORIDE
     Dosage: 600 MG, DAILY
     Route: 048
     Dates: start: 20240830

REACTIONS (3)
  - Thrombocytopenia [Not Recovered/Not Resolved]
  - Anaemia [Not Recovered/Not Resolved]
  - Off label use [Unknown]

NARRATIVE: CASE EVENT DATE: 20240214
